FAERS Safety Report 5120549-6 (Version None)
Quarter: 2006Q4

REPORT INFORMATION
  Report Type: 
  Country: None (occurrence: None)
  Receive Date: 20061002
  Receipt Date: 20060925
  Transmission Date: 20070319
  Serious: Yes (Life-Threatening)
  Sender: FDA-Public Use
  Company Number: 2006BH011782

PATIENT
  Age: 16 Year
  Sex: Male
  Weight: 40 kg

DRUGS (4)
  1. DIANEAL PD4 ULTRABAG (DIANEAL PD4 GLUCOSE AND ELECTROLYTES) [Suspect]
     Indication: RENAL FAILURE CHRONIC
     Dosage: 1500 ML; 4X A DAY; IP
     Route: 033
     Dates: start: 19890130, end: 20010308
  2. DIANEAL PD4 ULTRABAG (DIANEAL PD4 GLUCOSE AND ELECTROLYTES) [Suspect]
     Indication: RENAL FAILURE CHRONIC
     Dosage: 1500 ML; 4X A DAY; IP
     Route: 033
     Dates: start: 19890130, end: 20010308
  3. DIANEAL PD4 ULTRABAG (DIANEAL PD4 GLUCOSE AND ELECTROLYTES) [Suspect]
     Indication: RENAL FAILURE CHRONIC
     Dosage: 1500 ML; 4X A DAY; IP
     Route: 033
     Dates: start: 19890130, end: 20010308
  4. PREDNISOLONE [Concomitant]

REACTIONS (3)
  - ABDOMINAL PAIN [None]
  - DIARRHOEA [None]
  - SCLEROSING ENCAPSULATING PERITONITIS [None]
